FAERS Safety Report 5697778-6 (Version None)
Quarter: 2008Q2

REPORT INFORMATION
  Report Type: 
  Country: None (occurrence: None)
  Receive Date: 20080404
  Receipt Date: 20080404
  Transmission Date: 20081010
  Serious: Yes (Other)
  Sender: FDA-Public Use
  Company Number: None

PATIENT
  Sex: Male

DRUGS (1)
  1. MULTIHANCE [Suspect]
     Dosage: 20 ML

REACTIONS (3)
  - COUGH [None]
  - UNRESPONSIVE TO STIMULI [None]
  - URTICARIA [None]
